FAERS Safety Report 9959597 (Version 2)
Quarter: 2014Q3

REPORT INFORMATION
  Report Type: Spontaneous
  Country: US (occurrence: None)
  Receive Date: 20140228
  Receipt Date: 20140702
  Transmission Date: 20150326
  Serious: No
  Sender: FDA-Public Use
  Company Number: 2014-US-001992

PATIENT
  Age: 56 Year
  Sex: Male

DRUGS (1)
  1. XYREM [Suspect]
     Active Substance: SODIUM OXYBATE
     Indication: CATAPLEXY
     Dates: start: 200810, end: 2008

REACTIONS (6)
  - Vascular occlusion [None]
  - Condition aggravated [None]
  - Memory impairment [None]
  - Cerebrovascular disorder [None]
  - Visual impairment [None]
  - Cataplexy [None]

NARRATIVE: CASE EVENT DATE: 2008
